FAERS Safety Report 12644976 (Version 2)
Quarter: 2016Q4

REPORT INFORMATION
  Report Type: Spontaneous
  Country: US (occurrence: US)
  Receive Date: 20160811
  Receipt Date: 20161227
  Transmission Date: 20170207
  Serious: No
  Sender: FDA-Public Use
  Company Number: US-PFIZER INC-2016375942

PATIENT
  Age: 69 Year
  Sex: Female

DRUGS (2)
  1. IBUPROFEN. [Suspect]
     Active Substance: IBUPROFEN
     Dosage: UNK
  2. TETANUS TOXOID [Suspect]
     Active Substance: TETANUS TOXOIDS
     Dosage: UNK

REACTIONS (2)
  - Drug hypersensitivity [Unknown]
  - Swelling [Unknown]

NARRATIVE: CASE EVENT DATE: 20071101
